FAERS Safety Report 24925014 (Version 1)
Quarter: 2025Q1

REPORT INFORMATION
  Report Type: Report from Study
  Country: US (occurrence: US)
  Receive Date: 20250204
  Receipt Date: 20250204
  Transmission Date: 20250408
  Serious: No
  Sender: EXELIXIS
  Company Number: US-EXELIXIS-CABO-24077537

PATIENT
  Sex: Female

DRUGS (3)
  1. CABOMETYX [Suspect]
     Active Substance: CABOZANTINIB S-MALATE
     Indication: Renal cancer
     Dosage: 60 MG, QD
     Route: 048
     Dates: start: 202403
  2. ONDANSETRON [Concomitant]
     Active Substance: ONDANSETRON
  3. LENVIMA [Concomitant]
     Active Substance: LENVATINIB

REACTIONS (4)
  - Blood pressure increased [Unknown]
  - Decreased appetite [Unknown]
  - Amenorrhoea [Unknown]
  - Depression [Unknown]
